FAERS Safety Report 6965499-5 (Version None)
Quarter: 2010Q3

REPORT INFORMATION
  Report Type: 
  Country: None (occurrence: None)
  Receive Date: 20100903
  Receipt Date: 20100826
  Transmission Date: 20110219
  Serious: Yes (Hospitalization)
  Sender: FDA-Public Use
  Company Number: AR-JNJFOC-20100809082

PATIENT
  Age: 6 Year
  Sex: Male

DRUGS (1)
  1. IBUPIRAC 2% [Suspect]
     Indication: EAR PAIN
     Route: 048

REACTIONS (4)
  - EYELID OEDEMA [None]
  - LIP OEDEMA [None]
  - PRODUCT CONTAMINATION MICROBIAL [None]
  - SKIN LESION [None]
